FAERS Safety Report 5057129-7 (Version None)
Quarter: 2006Q2

REPORT INFORMATION
  Report Type: 
  Country: None (occurrence: None)
  Receive Date: 20060622
  Receipt Date: 20050524
  Transmission Date: 20061013
  Serious: Yes (Death)
  Sender: FDA-Public Use
  Company Number: US-JNJFOC-20050307287

PATIENT
  Age: 47 Year
  Sex: Male

DRUGS (1)
  1. FENTANYL TRANSDERMAL SYSTEM [Suspect]
     Indication: INTENTIONAL DRUG MISUSE
     Dosage: 50 UG/HR, ORAL
     Route: 048
     Dates: end: 20050213

REACTIONS (3)
  - DRUG ABUSER [None]
  - NARCOTIC INTOXICATION [None]
  - OVERDOSE [None]
